FAERS Safety Report 25673671 (Version 1)
Quarter: 2025Q3

REPORT INFORMATION
  Report Type: Spontaneous
  Country: US (occurrence: US)
  Receive Date: 20250813
  Receipt Date: 20250813
  Transmission Date: 20251020
  Serious: Yes (Other)
  Sender: ALEMBIC
  Company Number: US-ALEMBIC PHARMACUETICALS LIMITED-2025SCAL000739

PATIENT

DRUGS (19)
  1. CLONIDINE HYDROCHLORIDE [Interacting]
     Active Substance: CLONIDINE HYDROCHLORIDE
     Indication: Anxiety
     Route: 065
  2. CLONIDINE HYDROCHLORIDE [Interacting]
     Active Substance: CLONIDINE HYDROCHLORIDE
     Route: 065
     Dates: start: 202309
  3. CLONAZEPAM [Interacting]
     Active Substance: CLONAZEPAM
     Indication: Anxiety
     Route: 065
  4. CLONAZEPAM [Interacting]
     Active Substance: CLONAZEPAM
     Route: 065
     Dates: start: 202210
  5. CLONAZEPAM [Interacting]
     Active Substance: CLONAZEPAM
     Route: 065
     Dates: end: 20240226
  6. MODAFINIL [Interacting]
     Active Substance: MODAFINIL
     Indication: Somnolence
     Route: 065
     Dates: end: 20240226
  7. LITHIUM CARBONATE [Interacting]
     Active Substance: LITHIUM CARBONATE
     Indication: Aggression
     Route: 065
  8. LITHIUM CARBONATE [Interacting]
     Active Substance: LITHIUM CARBONATE
     Indication: Euphoric mood
     Route: 065
     Dates: start: 202210
  9. LITHIUM CARBONATE [Interacting]
     Active Substance: LITHIUM CARBONATE
     Route: 065
     Dates: start: 202309
  10. LITHIUM CARBONATE [Interacting]
     Active Substance: LITHIUM CARBONATE
     Route: 065
  11. VALPROIC ACID [Interacting]
     Active Substance: VALPROIC ACID
     Indication: Aggression
     Route: 065
  12. VALPROIC ACID [Interacting]
     Active Substance: VALPROIC ACID
     Indication: Euphoric mood
     Route: 065
  13. SERTRALINE [Interacting]
     Active Substance: SERTRALINE HYDROCHLORIDE
     Indication: Anxiety
     Route: 065
  14. SERTRALINE [Interacting]
     Active Substance: SERTRALINE HYDROCHLORIDE
     Route: 065
  15. RISPERIDONE [Interacting]
     Active Substance: RISPERIDONE
     Indication: Anxiety
     Route: 065
  16. RISPERIDONE [Interacting]
     Active Substance: RISPERIDONE
     Route: 065
  17. RISPERIDONE [Interacting]
     Active Substance: RISPERIDONE
     Route: 065
     Dates: start: 202307
  18. RISPERIDONE [Interacting]
     Active Substance: RISPERIDONE
     Route: 065
     Dates: start: 202309
  19. RISPERIDONE [Interacting]
     Active Substance: RISPERIDONE
     Route: 065
     Dates: end: 202507

REACTIONS (32)
  - Extrapyramidal disorder [Recovering/Resolving]
  - Dystonia [Recovering/Resolving]
  - Dysarthria [Recovering/Resolving]
  - Reduced facial expression [Recovering/Resolving]
  - Cogwheel rigidity [Recovering/Resolving]
  - Gait disturbance [Recovering/Resolving]
  - Speech disorder [Recovering/Resolving]
  - Affective disorder [Recovering/Resolving]
  - Drug interaction [Recovering/Resolving]
  - Multiple drug therapy [Unknown]
  - Activation syndrome [Recovered/Resolved]
  - Defiant behaviour [Recovered/Resolved]
  - Memory impairment [Recovered/Resolved]
  - Impulsive behaviour [Recovered/Resolved]
  - Persistent depressive disorder [Recovered/Resolved]
  - Irritability [Recovered/Resolved]
  - Feeling guilty [Recovered/Resolved]
  - Delusion [Recovered/Resolved]
  - Grandiosity [Recovered/Resolved]
  - Aggression [Recovered/Resolved]
  - Screaming [Recovered/Resolved]
  - Terminal insomnia [Recovered/Resolved]
  - Mental status changes [Recovered/Resolved]
  - Depressed mood [Recovered/Resolved]
  - Egocentrism [Recovered/Resolved]
  - Abnormal behaviour [Recovered/Resolved]
  - Negativism [Recovered/Resolved]
  - Cognitive disorder [Recovered/Resolved]
  - Hyperarousal [Recovered/Resolved]
  - Pollakiuria [Unknown]
  - Antipsychotic drug level below therapeutic [Recovering/Resolving]
  - Therapy non-responder [Unknown]
